FAERS Safety Report 17602721 (Version 1)
Quarter: 2020Q1

REPORT INFORMATION
  Report Type: Report from Study
  Country: None (occurrence: US)
  Receive Date: 20200330
  Receipt Date: 20200330
  Transmission Date: 20200409
  Serious: Yes (Other)
  Sender: FDA-Public Use
  Company Number: US-ABBVIE-20K-163-3272295-00

PATIENT
  Age: 64 Year
  Sex: Male

DRUGS (2)
  1. HUMIRA [Suspect]
     Active Substance: ADALIMUMAB
     Indication: COLITIS ULCERATIVE
     Dosage: DAY 1
     Route: 058
     Dates: start: 20200129, end: 20200129
  2. HUMIRA [Suspect]
     Active Substance: ADALIMUMAB
     Indication: COLITIS ULCERATIVE
     Route: 058
     Dates: start: 202002

REACTIONS (15)
  - Defaecation urgency [Not Recovered/Not Resolved]
  - Oedema peripheral [Unknown]
  - Diarrhoea [Unknown]
  - Muscle strain [Unknown]
  - Anorectal discomfort [Unknown]
  - Flatulence [Recovering/Resolving]
  - Rectal haemorrhage [Not Recovered/Not Resolved]
  - Dairy intolerance [Unknown]
  - Abnormal faeces [Unknown]
  - Pain in extremity [Unknown]
  - Pancreatic failure [Unknown]
  - Constipation [Unknown]
  - Insomnia [Not Recovered/Not Resolved]
  - Frequent bowel movements [Recovering/Resolving]
  - Diarrhoea haemorrhagic [Not Recovered/Not Resolved]

NARRATIVE: CASE EVENT DATE: 2020
